FAERS Safety Report 19487655 (Version 4)
Quarter: 2021Q4

REPORT INFORMATION
  Report Type: Spontaneous
  Country: FR (occurrence: FR)
  Receive Date: 20210702
  Receipt Date: 20211230
  Transmission Date: 20220304
  Serious: Yes (Other)
  Sender: FDA-Public Use
  Company Number: FR-TEVA-2021-FR-1913861

PATIENT
  Age: 52 Year
  Sex: Female

DRUGS (3)
  1. COPAXONE [Suspect]
     Active Substance: GLATIRAMER ACETATE
     Indication: Multiple sclerosis
     Route: 058
     Dates: start: 20170910, end: 20210619
  2. OXYCODONE [Concomitant]
     Active Substance: OXYCODONE
     Indication: Back pain
     Dosage: 50 MILLIGRAM DAILY; 25 MG TO TAKE IN THE MORNING AND IN THE EVENING
     Route: 048
     Dates: start: 20150501
  3. OXYCODONE [Concomitant]
     Active Substance: OXYCODONE
     Indication: Sciatica

REACTIONS (32)
  - Multiple sclerosis relapse [Unknown]
  - Aphasia [Recovering/Resolving]
  - Swelling face [Recovering/Resolving]
  - Generalised oedema [Not Recovered/Not Resolved]
  - Injection site nodule [Not Recovered/Not Resolved]
  - Feeling hot [Not Recovered/Not Resolved]
  - Erythema [Recovering/Resolving]
  - Dyspnoea [Recovering/Resolving]
  - Injection site bruising [Not Recovered/Not Resolved]
  - Injection site mass [Not Recovered/Not Resolved]
  - Hypersensitivity [Unknown]
  - Abdominal discomfort [Not Recovered/Not Resolved]
  - Eye swelling [Recovering/Resolving]
  - Ocular hyperaemia [Recovering/Resolving]
  - Lip swelling [Recovering/Resolving]
  - Lip erythema [Recovering/Resolving]
  - Palpitations [Unknown]
  - Tremor [Recovering/Resolving]
  - Rash [Recovering/Resolving]
  - Hyperhidrosis [Recovering/Resolving]
  - Sensory loss [Unknown]
  - Dysstasia [Unknown]
  - Diarrhoea [Unknown]
  - Fatigue [Not Recovered/Not Resolved]
  - Pain [Unknown]
  - Eating disorder symptom [Not Recovered/Not Resolved]
  - Peripheral swelling [Not Recovered/Not Resolved]
  - Balance disorder [Unknown]
  - Dizziness [Unknown]
  - Abnormal sensation in eye [Not Recovered/Not Resolved]
  - Tachycardia [Recovered/Resolved]
  - Abdominal discomfort [Not Recovered/Not Resolved]

NARRATIVE: CASE EVENT DATE: 20210101
